FAERS Safety Report 17885180 (Version 1)
Quarter: 2020Q2

REPORT INFORMATION
  Report Type: Spontaneous
  Country: US (occurrence: US)
  Receive Date: 20200611
  Receipt Date: 20200611
  Transmission Date: 20200714
  Serious: No
  Sender: FDA-Public Use
  Company Number: None

PATIENT
  Age: 94 Year
  Sex: Male
  Weight: 77.85 kg

DRUGS (22)
  1. ALBUTEROL. [Concomitant]
     Active Substance: ALBUTEROL
  2. BENZONATATE. [Concomitant]
     Active Substance: BENZONATATE
  3. AMLODIPINE [Concomitant]
     Active Substance: AMLODIPINE BESYLATE
  4. CALCIUM [Concomitant]
     Active Substance: CALCIUM
  5. PROCRIT [Suspect]
     Active Substance: ERYTHROPOIETIN
     Indication: ANAEMIA
     Dates: start: 20200406, end: 20200611
  6. ARANESP [Concomitant]
     Active Substance: DARBEPOETIN ALFA
  7. TAMSULOSIN [Concomitant]
     Active Substance: TAMSULOSIN
  8. IRON [Concomitant]
     Active Substance: IRON
  9. FLUTICASONE. [Concomitant]
     Active Substance: FLUTICASONE
  10. METOPROLOL. [Concomitant]
     Active Substance: METOPROLOL
  11. PRAVASTATIN. [Concomitant]
     Active Substance: PRAVASTATIN
  12. ENTRESTO [Concomitant]
     Active Substance: SACUBITRIL\VALSARTAN
  13. TYLENOL [Concomitant]
     Active Substance: ACETAMINOPHEN
  14. FAMOTIDINE. [Concomitant]
     Active Substance: FAMOTIDINE
  15. FEXOFENADINE [Concomitant]
     Active Substance: FEXOFENADINE HYDROCHLORIDE
  16. CALCITROL [Concomitant]
  17. MOMETASONE [Concomitant]
     Active Substance: MOMETASONE
  18. MONTELUKAST [Concomitant]
     Active Substance: MONTELUKAST SODIUM
  19. SODIUM CHLORIDE. [Concomitant]
     Active Substance: SODIUM CHLORIDE
  20. ALLOPURINOL. [Concomitant]
     Active Substance: ALLOPURINOL
  21. ATROVENT [Concomitant]
     Active Substance: IPRATROPIUM BROMIDE
  22. SYSTANE (HYPROMELLOSE 2910 (4000 MPA.S)) [Concomitant]
     Active Substance: HYPROMELLOSE 2910 (4000 MPA.S)

REACTIONS (1)
  - Death [None]

NARRATIVE: CASE EVENT DATE: 20200611
